FAERS Safety Report 4959705-6 (Version None)
Quarter: 2006Q1

REPORT INFORMATION
  Report Type: 
  Country: None (occurrence: None)
  Receive Date: 20060327
  Receipt Date: 20060317
  Transmission Date: 20060701
  Serious: Yes (Other)
  Sender: FDA-Public Use
  Company Number: 2006-02-0835

PATIENT
  Age: 63 Year
  Sex: Male

DRUGS (26)
  1. BETAMETHASONE DIPROPIONATE [Suspect]
     Indication: GASTRIC CANCER
     Dosage: 4-6 MG* INTRAVENOUS
     Route: 042
     Dates: start: 20050826, end: 20050826
  2. BETAMETHASONE DIPROPIONATE [Suspect]
     Indication: METASTASES TO LIVER
     Dosage: 4-6 MG* INTRAVENOUS
     Route: 042
     Dates: start: 20050826, end: 20050826
  3. BETAMETHASONE DIPROPIONATE [Suspect]
     Indication: GASTRIC CANCER
     Dosage: 4-6 MG* INTRAVENOUS
     Route: 042
     Dates: start: 20050920, end: 20050920
  4. BETAMETHASONE DIPROPIONATE [Suspect]
     Indication: METASTASES TO LIVER
     Dosage: 4-6 MG* INTRAVENOUS
     Route: 042
     Dates: start: 20050920, end: 20050920
  5. BETAMETHASONE DIPROPIONATE [Suspect]
     Indication: GASTRIC CANCER
     Dosage: 4-6 MG* INTRAVENOUS
     Route: 042
     Dates: start: 20051018, end: 20051018
  6. BETAMETHASONE DIPROPIONATE [Suspect]
     Indication: METASTASES TO LIVER
     Dosage: 4-6 MG* INTRAVENOUS
     Route: 042
     Dates: start: 20051018, end: 20051018
  7. RANDA [Suspect]
     Indication: GASTRIC CANCER
     Dosage: 30-90 MG* INTRAVENOUS
     Route: 042
     Dates: start: 20050826
  8. RANDA [Suspect]
     Indication: METASTASES TO LIVER
     Dosage: 30-90 MG* INTRAVENOUS
     Route: 042
     Dates: start: 20050826
  9. RANDA [Suspect]
     Indication: GASTRIC CANCER
     Dosage: 30-90 MG* INTRAVENOUS
     Route: 042
     Dates: start: 20050920
  10. RANDA [Suspect]
     Indication: METASTASES TO LIVER
     Dosage: 30-90 MG* INTRAVENOUS
     Route: 042
     Dates: start: 20050920
  11. RANDA [Suspect]
     Indication: GASTRIC CANCER
     Dosage: 30-90 MG* INTRAVENOUS
     Route: 042
     Dates: start: 20051018
  12. RANDA [Suspect]
     Indication: METASTASES TO LIVER
     Dosage: 30-90 MG* INTRAVENOUS
     Route: 042
     Dates: start: 20051018
  13. KYTRIL [Suspect]
     Indication: GASTRIC CANCER
     Dosage: INTRAVENOUS
     Route: 042
     Dates: start: 20050826
  14. KYTRIL [Suspect]
     Indication: METASTASES TO LIVER
     Dosage: INTRAVENOUS
     Route: 042
     Dates: start: 20050826
  15. KYTRIL [Suspect]
     Indication: GASTRIC CANCER
     Dosage: INTRAVENOUS
     Route: 042
     Dates: start: 20050920
  16. KYTRIL [Suspect]
     Indication: METASTASES TO LIVER
     Dosage: INTRAVENOUS
     Route: 042
     Dates: start: 20050920
  17. KYTRIL [Suspect]
     Indication: GASTRIC CANCER
     Dosage: INTRAVENOUS
     Route: 042
     Dates: start: 20051018
  18. KYTRIL [Suspect]
     Indication: METASTASES TO LIVER
     Dosage: INTRAVENOUS
     Route: 042
     Dates: start: 20051018
  19. AMARYL [Concomitant]
  20. AMLODIPINE BESYLATE [Concomitant]
  21. CHEMOTHERAPY REGIMENS [Concomitant]
  22. CHEMOTHERAPY REGIMENS [Concomitant]
  23. CHEMOTHERAPY REGIMENS [Concomitant]
  24. OMEPRAZOLE [Concomitant]
  25. BASEN [Concomitant]
  26. FUROSEMIDE [Concomitant]

REACTIONS (2)
  - HICCUPS [None]
  - OBSTRUCTION GASTRIC [None]
